FAERS Safety Report 14517405 (Version 2)
Quarter: 2018Q2

REPORT INFORMATION
  Report Type: Spontaneous
  Country: JP (occurrence: JP)
  Receive Date: 20180212
  Receipt Date: 20180504
  Transmission Date: 20180711
  Serious: Yes (Death)
  Sender: FDA-Public Use
  Company Number: JP-ROCHE-2070931

PATIENT
  Age: 48 Year
  Sex: Female
  Weight: 65 kg

DRUGS (6)
  1. PACLITAXEL. [Concomitant]
     Active Substance: PACLITAXEL
     Indication: CERVIX CARCINOMA
     Dosage: DOSAGE WAS UNCERTAIN?LAST RECEIVED: 10/JAN/2018
     Route: 041
     Dates: start: 20180110
  2. LYRICA [Concomitant]
     Active Substance: PREGABALIN
     Dosage: DOSAGE WAS UNCERTAIN.
     Route: 065
  3. AVASTIN [Suspect]
     Active Substance: BEVACIZUMAB
     Indication: CERVIX CARCINOMA
     Dosage: LAST RECEIVED: 10/JAN/2018
     Route: 041
     Dates: start: 20180110
  4. MAGNESIUM OXIDE. [Concomitant]
     Active Substance: MAGNESIUM OXIDE
     Dosage: DOSAGE WAS UNCERTAIN.
     Route: 065
  5. CARBOPLATIN. [Concomitant]
     Active Substance: CARBOPLATIN
     Indication: CERVIX CARCINOMA
     Dosage: DOSAGE WAS UNCERTAIN?LAST RECEIVED: 10/JAN/2018
     Route: 041
     Dates: start: 20180110
  6. CELECOX [Concomitant]
     Active Substance: CELECOXIB
     Dosage: DOSAGE WAS UNCERTAIN.
     Route: 065

REACTIONS (1)
  - Sudden death [Fatal]

NARRATIVE: CASE EVENT DATE: 20180123
